FAERS Safety Report 17640630 (Version 4)
Quarter: 2020Q3

REPORT INFORMATION
  Report Type: Spontaneous
  Country: US (occurrence: US)
  Receive Date: 20200407
  Receipt Date: 20200709
  Transmission Date: 20201102
  Serious: Yes (Hospitalization)
  Sender: FDA-Public Use
  Company Number: US-ASTRAZENECA-2020SE43752

PATIENT
  Age: 25533 Day
  Sex: Female

DRUGS (2)
  1. SYMBICORT [Suspect]
     Active Substance: BUDESONIDE\FORMOTEROL FUMARATE DIHYDRATE
     Dosage: 80/4.5 MCG 2 PUFFS ONCE DAILY
     Route: 055
  2. GENERIC BUDESONIDE FORMOTEROL [Suspect]
     Active Substance: BUDESONIDE\FORMOTEROL FUMARATE DIHYDRATE
     Dosage: 80/4.5, UNKNOWN FREQUENCY GENERIC UNKNOWN
     Route: 055
     Dates: start: 20200321

REACTIONS (7)
  - Regurgitation [Unknown]
  - Pulmonary congestion [Not Recovered/Not Resolved]
  - Device malfunction [Unknown]
  - Pneumonia [Not Recovered/Not Resolved]
  - Insomnia [Unknown]
  - Asthma [Not Recovered/Not Resolved]
  - Product substitution issue [Unknown]

NARRATIVE: CASE EVENT DATE: 20200228
